FAERS Safety Report 5275062-2 (Version None)
Quarter: 2007Q1

REPORT INFORMATION
  Report Type: 
  Country: None (occurrence: None)
  Receive Date: 20070326
  Receipt Date: 20070319
  Transmission Date: 20070707
  Serious: Yes (Hospitalization, Other)
  Sender: FDA-Public Use
  Company Number: US-BAYER-200710811BCC

PATIENT
  Age: 74 Year
  Sex: Male
  Weight: 114 kg

DRUGS (9)
  1. ASPIRIN [Suspect]
     Indication: RENAL CELL CARCINOMA STAGE UNSPECIFIED
  2. BLINDED THERAPY (SUNITIB VS. SORAFENIB VS. PLACEBO) [Suspect]
     Indication: RENAL CELL CARCINOMA STAGE UNSPECIFIED
  3. CELEXA [Concomitant]
  4. GLIPIZIDE [Concomitant]
  5. MIRTAZAPINE [Concomitant]
  6. NAMENDA [Concomitant]
  7. SIMVASTATIN [Concomitant]
  8. TYLENOL [Concomitant]
  9. VALSARTAN [Concomitant]

REACTIONS (3)
  - HAEMORRHOIDS [None]
  - LARGE INTESTINAL ULCER [None]
  - RECTAL HAEMORRHAGE [None]
